FAERS Safety Report 23201461 (Version 4)
Quarter: 2024Q1

REPORT INFORMATION
  Report Type: Spontaneous
  Country: US (occurrence: US)
  Receive Date: 20231118
  Receipt Date: 20240124
  Transmission Date: 20240410
  Serious: Yes (Hospitalization)
  Sender: FDA-Public Use
  Company Number: US-SA-SAC20231113000464

PATIENT
  Age: 41 Year
  Sex: Female

DRUGS (2)
  1. DUPIXENT [Suspect]
     Active Substance: DUPILUMAB
     Indication: Dermatitis atopic
     Dosage: 600 MG, 1X
     Route: 058
     Dates: start: 202303, end: 202303
  2. DUPIXENT [Suspect]
     Active Substance: DUPILUMAB
     Indication: Eczema
     Dosage: 300 MG, QOW
     Route: 058
     Dates: start: 2023

REACTIONS (3)
  - COVID-19 [Not Recovered/Not Resolved]
  - Upper respiratory tract infection [Not Recovered/Not Resolved]
  - Eczema [Unknown]

NARRATIVE: CASE EVENT DATE: 20230101
